FAERS Safety Report 4422632-7 (Version None)
Quarter: 2004Q3

REPORT INFORMATION
  Report Type: 
  Country: None (occurrence: None)
  Receive Date: 20040713
  Receipt Date: 20030414
  Transmission Date: 20050211
  Serious: No
  Sender: FDA-Public Use
  Company Number: PHEH2003US02947

PATIENT
  Sex: Female

DRUGS (4)
  1. ELIDEL [Suspect]
     Indication: RASH
     Dosage: QD, TOPICAL
     Route: 061
     Dates: start: 20030305
  2. RISPERDAL [Concomitant]
  3. PREDNISONE [Concomitant]
  4. ATARAX [Concomitant]

REACTIONS (4)
  - APPLICATION SITE DERMATITIS [None]
  - APPLICATION SITE PRURITUS [None]
  - CHILLS [None]
  - DRUG INEFFECTIVE [None]
